FAERS Safety Report 7073478-5 (Version None)
Quarter: 2010Q4

REPORT INFORMATION
  Report Type: 
  Country: None (occurrence: None)
  Receive Date: 20101029
  Receipt Date: 20100623
  Transmission Date: 20110411
  Serious: No
  Sender: FDA-Public Use
  Company Number: A0866782A

PATIENT
  Age: 74 Year
  Sex: Female

DRUGS (4)
  1. ADVAIR DISKUS 100/50 [Suspect]
     Indication: ASTHMA
     Dosage: 1PUFF TWICE PER DAY
     Route: 055
     Dates: start: 20010401, end: 20010601
  2. ADVAIR DISKUS 100/50 [Suspect]
     Dosage: 1PUFF TWICE PER DAY
     Route: 055
     Dates: start: 20100622
  3. ALLERGY SHOTS [Concomitant]
  4. METHOTREXATE [Concomitant]

REACTIONS (3)
  - CANDIDIASIS [None]
  - OROPHARYNGEAL PAIN [None]
  - PARAESTHESIA ORAL [None]
